FAERS Safety Report 15302464 (Version 4)
Quarter: 2020Q2

REPORT INFORMATION
  Report Type: Spontaneous
  Country: DE (occurrence: DE)
  Receive Date: 20180821
  Receipt Date: 20200604
  Transmission Date: 20200713
  Serious: Yes (Hospitalization, Other)
  Sender: FDA-Public Use
  Company Number: PHHY2018DE070794

PATIENT
  Age: 57 Year
  Sex: Male
  Weight: 68 kg

DRUGS (19)
  1. DEXAMETHASONE. [Suspect]
     Active Substance: DEXAMETHASONE
     Indication: PLASMA CELL MYELOMA
     Dosage: 40 MG, UNK
     Route: 065
  2. UNACID [Concomitant]
     Indication: PROPHYLAXIS
  3. ACC [Concomitant]
     Active Substance: ACETYLCYSTEINE
     Indication: PROPHYLAXIS
     Dosage: 1 DF, UNK
     Route: 065
     Dates: start: 20180525
  4. PANTOPRAZOL BETA [Concomitant]
     Indication: PROPHYLAXIS
     Dosage: 40 MG, QD
     Route: 065
  5. HYDROMORPHONHYDROCHLORID BETA [Concomitant]
     Indication: PAIN
     Dosage: 8 MG, BID
     Route: 065
     Dates: start: 2016
  6. UNACID [Concomitant]
     Indication: CARDIAC FAILURE
     Dosage: 1 OT, UNK
     Route: 042
     Dates: start: 20180525
  7. INNOHEP [Concomitant]
     Active Substance: TINZAPARIN SODIUM
     Indication: PROPHYLAXIS
     Dosage: UNK
     Route: 065
  8. DEXAMETHASONE. [Suspect]
     Active Substance: DEXAMETHASONE
     Dosage: 40 MG, UNK
     Route: 065
     Dates: start: 20180516
  9. KYPROLIS [Suspect]
     Active Substance: CARFILZOMIB
     Indication: PLASMA CELL MYELOMA
     Dosage: 20 MG/M2, UNK
     Route: 042
     Dates: start: 20180516, end: 20180517
  10. ZOMETA [Concomitant]
     Active Substance: ZOLEDRONIC ACID
     Indication: PROPHYLAXIS
     Dosage: 4 MG, QMO
     Route: 065
     Dates: start: 20161006, end: 20190619
  11. PREGABALIN. [Concomitant]
     Active Substance: PREGABALIN
     Indication: PAIN
     Dosage: 50 MG, BID
     Route: 065
  12. FUROSEMID RATIOPHARM [Concomitant]
     Indication: PRODUCT USED FOR UNKNOWN INDICATION
     Dosage: 20 MG, UNK
     Route: 042
  13. TORASEMID BETA [Concomitant]
     Indication: DYSPNOEA
     Dosage: 10 MG, TID
     Route: 048
     Dates: start: 20180601
  14. IG VENA [Concomitant]
     Active Substance: HUMAN IMMUNOGLOBULIN G
     Indication: PROPHYLAXIS
     Dosage: 10 G, UNK
     Route: 065
     Dates: start: 20180625
  15. KYPROLIS [Suspect]
     Active Substance: CARFILZOMIB
     Dosage: 56 MG/M2, UNK
     Route: 042
     Dates: start: 20180524, end: 20180627
  16. KALINOR [Concomitant]
     Indication: PRODUCT USED FOR UNKNOWN INDICATION
     Dosage: UNK, THREE TIMES A DAY AND THEN DAILY
     Route: 065
     Dates: start: 201805, end: 20180608
  17. RAMIPRIL BETA COMP [Concomitant]
     Indication: HYPERTONIA
     Dosage: 2.5 MG, TID
     Route: 065
     Dates: end: 201805
  18. HYDROMORPHON RATIOPHARM [Concomitant]
     Indication: PAIN
     Dosage: 2.31 MG, PRN
     Route: 065
     Dates: start: 20180601
  19. INNOHEP [Concomitant]
     Active Substance: TINZAPARIN SODIUM
     Indication: CARDIAC FAILURE
     Dosage: 1 OT, UNK
     Route: 058
     Dates: start: 20180525

REACTIONS (5)
  - Oedema peripheral [Recovered/Resolved]
  - Tachycardia [Recovered/Resolved]
  - Dyspnoea [Recovered/Resolved]
  - Cardiac failure [Recovered/Resolved]
  - Anaemia [Recovered/Resolved]

NARRATIVE: CASE EVENT DATE: 20180525
